FAERS Safety Report 5574449-8 (Version None)
Quarter: 2007Q4

REPORT INFORMATION
  Report Type: 
  Country: None (occurrence: None)
  Receive Date: 20071227
  Receipt Date: 20071219
  Transmission Date: 20080405
  Serious: Yes (Other)
  Sender: FDA-Public Use
  Company Number: GB-AVENTIS-200721664GDDC

PATIENT
  Age: 67 Year
  Sex: Female

DRUGS (3)
  1. METRONIDAZOLE [Suspect]
     Indication: TOOTH INFECTION
     Dosage: DOSE: UNK
     Dates: start: 20071029, end: 20071105
  2. METHOTREXATE [Concomitant]
     Indication: RHEUMATOID ARTHRITIS
     Route: 048
     Dates: start: 20030101, end: 20071126
  3. SULFASALAZINE [Concomitant]
     Route: 048
     Dates: start: 20030101, end: 20071126

REACTIONS (1)
  - NEUTROPENIA [None]
